FAERS Safety Report 8968207 (Version 2)
Quarter: 2012Q4

REPORT INFORMATION
  Report Type: 
  Country: SD (occurrence: SD)
  Receive Date: 20121217
  Receipt Date: 20121219
  Transmission Date: 20130627
  Serious: Yes (Hospitalization, Other)
  Sender: FDA-Public Use
  Company Number: PHHY2012SD114978

PATIENT
  Age: 53 Year
  Sex: Female
  Weight: 82 kg

DRUGS (1)
  1. EXFORGE [Suspect]
     Indication: HYPERTENSION
     Dosage: 1 DF, QD (160/5 mg)
     Route: 048
     Dates: start: 20121201, end: 20121203

REACTIONS (2)
  - Cerebral infarction [Unknown]
  - Monoplegia [Recovered/Resolved with Sequelae]
